FAERS Safety Report 9144818 (Version 2)
Quarter: 2013Q1

REPORT INFORMATION
  Report Type: Spontaneous
  Country: US (occurrence: US)
  Receive Date: 20130307
  Receipt Date: 20130325
  Transmission Date: 20140127
  Serious: Yes (Hospitalization, Other)
  Sender: FDA-Public Use
  Company Number: US-AMGEN-USASP2013015210

PATIENT
  Age: 77 Year
  Sex: Male

DRUGS (7)
  1. ENBREL [Suspect]
     Indication: PSORIASIS
     Dosage: 50 MG, 2 TIMES/WK
     Route: 058
     Dates: start: 20130215
  2. ATENOLOL [Concomitant]
     Dosage: UNK
     Route: 048
  3. METFORMIN [Concomitant]
     Dosage: UNK
     Route: 048
  4. LOVASTATIN [Concomitant]
     Dosage: UNK
     Route: 048
  5. ASPIRIN [Concomitant]
     Dosage: 8 MG, UNK
     Route: 048
  6. TRAMADOL [Concomitant]
     Dosage: UNK
     Route: 048
  7. JANTOVEN [Concomitant]
     Dosage: UNK
     Route: 048

REACTIONS (6)
  - Nausea [Recovered/Resolved]
  - Feeling abnormal [Not Recovered/Not Resolved]
  - Dizziness [Not Recovered/Not Resolved]
  - Chest discomfort [Recovered/Resolved]
  - Sinus congestion [Not Recovered/Not Resolved]
  - Anxiety [Unknown]
